FAERS Safety Report 10643078 (Version 1)
Quarter: 2014Q4

REPORT INFORMATION
  Report Type: Spontaneous
  Country: US (occurrence: None)
  Receive Date: 20141209
  Receipt Date: 20141209
  Transmission Date: 20150529
  Serious: Yes (Death)
  Sender: FDA-Public Use
  Company Number: None

PATIENT
  Age: 46 Year
  Sex: Male

DRUGS (1)
  1. STELARA [Suspect]
     Active Substance: USTEKINUMAB
     Indication: PSORIASIS
     Dosage: 90MG, EVERY 3 MONTHS, SUBCUTANEOUS
     Route: 058
     Dates: start: 20130124, end: 20140930

REACTIONS (1)
  - Death [None]

NARRATIVE: CASE EVENT DATE: 20141005
